FAERS Safety Report 4414927-8 (Version None)
Quarter: 2004Q3

REPORT INFORMATION
  Report Type: 
  Country: None (occurrence: None)
  Receive Date: 20040803
  Receipt Date: 20040803
  Transmission Date: 20050211
  Serious: Yes (Life-Threatening, Hospitalization)
  Sender: FDA-Public Use
  Company Number: None

PATIENT
  Age: 44 Year
  Sex: Male
  Weight: 90.7194 kg

DRUGS (2)
  1. MEFLOQUINE [Suspect]
     Indication: ATRIOVENTRICULAR BLOCK COMPLETE
     Dosage: 1 PILL WEEK ORAL
     Route: 048
     Dates: start: 20040601, end: 20040708
  2. MEFLOQUINE [Suspect]
     Indication: BRADYCARDIA
     Dosage: 1 PILL WEEK ORAL
     Route: 048
     Dates: start: 20040601, end: 20040708

REACTIONS (3)
  - ATRIOVENTRICULAR BLOCK COMPLETE [None]
  - BRADYCARDIA [None]
  - CONVULSION [None]
